FAERS Safety Report 7516391-9 (Version None)
Quarter: 2011Q2

REPORT INFORMATION
  Report Type: 
  Country: None (occurrence: None)
  Receive Date: 20110601
  Receipt Date: 20110525
  Transmission Date: 20111010
  Serious: Yes (Hospitalization, Congenital Anomaly, Other)
  Sender: FDA-Public Use
  Company Number: DE-TEVA-283726GER

PATIENT
  Age: 0 Year
  Sex: Female
  Weight: 2.49 kg

DRUGS (6)
  1. MIRTAZAPINE [Suspect]
     Route: 064
     Dates: end: 20100612
  2. ACETAMINOPHEN [Concomitant]
     Dosage: 500 MILLIGRAM;
     Route: 064
     Dates: start: 20091205, end: 20091208
  3. MIRTAZAPINE [Suspect]
     Route: 064
     Dates: start: 20091001
  4. FOLIO FORTE [Concomitant]
     Dosage: .8 MILLIGRAM;
     Route: 064
  5. ESCITALOPRAM [Suspect]
     Dosage: 10 MILLIGRAM;
     Route: 064
     Dates: start: 20091001, end: 20091201
  6. AUGMENTAN FILMTABLETTEN 875/125MG [Concomitant]
     Dosage: 250 [MG/D (2X125) ] CLAVULANATE + 1750 [MG/D (2X875) ]AMOXICILLIN
     Route: 064
     Dates: start: 20091205, end: 20091206

REACTIONS (4)
  - HYPERBILIRUBINAEMIA NEONATAL [None]
  - PREMATURE BABY [None]
  - FEEDING DISORDER NEONATAL [None]
  - HAEMANGIOMA CONGENITAL [None]
